FAERS Safety Report 23056207 (Version 1)
Quarter: 2023Q4

REPORT INFORMATION
  Report Type: Spontaneous
  Country: CA (occurrence: CA)
  Receive Date: 20231011
  Receipt Date: 20231011
  Transmission Date: 20240110
  Serious: Yes (Hospitalization)
  Sender: FDA-Public Use
  Company Number: CA-Vifor Pharma-VIT-2023-07289

PATIENT
  Sex: Male

DRUGS (1)
  1. DIFELIKEFALIN [Suspect]
     Active Substance: DIFELIKEFALIN
     Indication: Product used for unknown indication
     Route: 042

REACTIONS (2)
  - Shoulder fracture [Unknown]
  - Fall [Unknown]
